FAERS Safety Report 17515999 (Version 1)
Quarter: 2020Q1

REPORT INFORMATION
  Report Type: Spontaneous
  Country: US (occurrence: US)
  Receive Date: 20200309
  Receipt Date: 20200309
  Transmission Date: 20200409
  Serious: Yes (Hospitalization, Other)
  Sender: FDA-Public Use
  Company Number: US-GLAXOSMITHKLINE-US2020037902

PATIENT
  Age: 61 Year
  Sex: Female

DRUGS (1)
  1. TRELEGY ELLIPTA [Suspect]
     Active Substance: FLUTICASONE FUROATE\UMECLIDINIUM BROMIDE\VILANTEROL TRIFENATATE
     Indication: MYOTONIC DYSTROPHY
     Dosage: 1 PUFF(S), QD
     Route: 055
     Dates: start: 20180323

REACTIONS (9)
  - Product use in unapproved indication [Unknown]
  - Loss of consciousness [Recovered/Resolved]
  - Speech disorder [Unknown]
  - Fall [Recovered/Resolved]
  - Head injury [Unknown]
  - Drug effective for unapproved indication [Unknown]
  - Concussion [Unknown]
  - Memory impairment [Recovered/Resolved]
  - Off label use [Unknown]

NARRATIVE: CASE EVENT DATE: 20180323
